FAERS Safety Report 21413813 (Version 1)
Quarter: 2022Q4

REPORT INFORMATION
  Report Type: Spontaneous
  Country: US (occurrence: US)
  Receive Date: 20221006
  Receipt Date: 20221006
  Transmission Date: 20230112
  Serious: No
  Sender: FDA-Public Use
  Company Number: US-ALLERGAN-2223133US

PATIENT
  Sex: Female

DRUGS (3)
  1. QULIPTA [Suspect]
     Active Substance: ATOGEPANT
     Indication: Migraine
     Dosage: UNK
  2. ELETRIPTAN [Concomitant]
     Active Substance: ELETRIPTAN
  3. SUMATRIPTAN [Concomitant]
     Active Substance: SUMATRIPTAN

REACTIONS (5)
  - Insomnia [Unknown]
  - Restlessness [Unknown]
  - Pyrexia [Unknown]
  - Dyspnoea [Unknown]
  - Drug ineffective [Unknown]
